FAERS Safety Report 18377765 (Version 2)
Quarter: 2020Q4

REPORT INFORMATION
  Report Type: Spontaneous
  Country: JP (occurrence: JP)
  Receive Date: 20201013
  Receipt Date: 20201030
  Transmission Date: 20210114
  Serious: Yes (Hospitalization, Disabling, Other)
  Sender: FDA-Public Use
  Company Number: JP-PFIZER INC-2020393160

PATIENT
  Age: 80 Year
  Sex: Female
  Weight: 55.2 kg

DRUGS (10)
  1. OPDIVO [Suspect]
     Active Substance: NIVOLUMAB
     Dosage: 240 MG, 1X/DAY
     Route: 041
     Dates: start: 20200709, end: 20200709
  2. OPDIVO [Suspect]
     Active Substance: NIVOLUMAB
     Dosage: 240 MG, 1X/DAY
     Route: 041
     Dates: start: 20200827, end: 20200827
  3. YERVOY [Suspect]
     Active Substance: IPILIMUMAB
     Indication: RENAL CELL CARCINOMA
     Dosage: 57.6 MG, 1X/DAY
     Route: 041
     Dates: start: 20200618, end: 20200618
  4. HOCHUEKKITO [ANGELICA ACUTILOBA ROOT;ASTRAGALUS SPP. ROOT;ATRACTYLODES [Concomitant]
     Active Substance: HERBALS
     Dosage: 2.5 G, 3X/DAY
     Route: 048
     Dates: start: 20200709
  5. YERVOY [Suspect]
     Active Substance: IPILIMUMAB
     Dosage: 57.6 MG, 1X/DAY
     Route: 041
     Dates: start: 20200709, end: 20200709
  6. INLYTA [Suspect]
     Active Substance: AXITINIB
     Indication: RENAL CELL CARCINOMA
     Dosage: 5 MG, 2X/DAY
     Route: 048
     Dates: start: 20200917, end: 20200919
  7. OPDIVO [Suspect]
     Active Substance: NIVOLUMAB
     Indication: RENAL CELL CARCINOMA
     Dosage: 240 MG, 1X/DAY
     Route: 041
     Dates: start: 20200618, end: 20200618
  8. YERVOY [Suspect]
     Active Substance: IPILIMUMAB
     Dosage: 57.6 MG, 1X/DAY
     Route: 041
     Dates: start: 20200827, end: 20200827
  9. MIYA-BM [Concomitant]
     Active Substance: CLOSTRIDIUM BUTYRICUM SPORES STRAIN M-55
     Dosage: 1 DF, 3X/DAY
     Route: 048
     Dates: start: 20200630
  10. INLYTA [Suspect]
     Active Substance: AXITINIB
     Dosage: UNK
     Dates: start: 202010

REACTIONS (2)
  - Eating disorder [Recovering/Resolving]
  - Adrenal insufficiency [Recovering/Resolving]

NARRATIVE: CASE EVENT DATE: 202009
